FAERS Safety Report 7211523-4 (Version None)
Quarter: 2011Q1

REPORT INFORMATION
  Report Type: 
  Country: None (occurrence: None)
  Receive Date: 20110105
  Receipt Date: 20101221
  Transmission Date: 20110831
  Serious: Yes (Hospitalization)
  Sender: FDA-Public Use
  Company Number: JP-PFIZER INC-2010170917

PATIENT
  Age: 89 Year
  Sex: Male

DRUGS (4)
  1. OPALMON [Concomitant]
     Indication: NEUROSIS
     Dosage: 5 UG, 3X/DAY
     Route: 048
     Dates: start: 20100421
  2. DEPAS [Concomitant]
     Indication: NEUROSIS
     Dosage: 0.5 MG, 3X/DAY
     Route: 048
     Dates: start: 20040516
  3. LYRICA [Suspect]
     Indication: NEUROSIS
     Dosage: 75 MG, 2X/DAY
     Route: 048
     Dates: start: 20101201
  4. METHYCOBAL [Concomitant]
     Indication: NEUROSIS
     Dosage: 500 UG, 3X/DAY
     Route: 048
     Dates: start: 20040301

REACTIONS (5)
  - ALTERED STATE OF CONSCIOUSNESS [None]
  - RASH [None]
  - SOMNOLENCE [None]
  - DIZZINESS [None]
  - SKIN EXFOLIATION [None]
